FAERS Safety Report 7484770-4 (Version None)
Quarter: 2011Q2

REPORT INFORMATION
  Report Type: 
  Country: None (occurrence: None)
  Receive Date: 20110517
  Receipt Date: 20090115
  Transmission Date: 20111010
  Serious: Yes (Other)
  Sender: FDA-Public Use
  Company Number: US-BAYER-2011-006403

PATIENT
  Age: 29 Year
  Sex: Male
  Weight: 74.83 kg

DRUGS (19)
  1. TRASYLOL [Suspect]
     Indication: AORTIC VALVE REPLACEMENT
     Dosage: 1ML INTIAL TEST DOSE, 200MG BOLUS, THEN 50ML/HR
     Route: 042
     Dates: start: 20060420, end: 20060420
  2. HEPARIN [Concomitant]
     Dosage: 5000 U, UNK
     Route: 042
  3. PROTAMINE SULFATE [Concomitant]
     Dosage: 250 MG, UNK
     Route: 042
  4. VANCOMYCIN [Concomitant]
     Dosage: 1 G, UNK
     Route: 042
  5. ALDACTONE [Concomitant]
     Dosage: 12.5 MG, QD
     Route: 048
  6. LISINOPRIL [Concomitant]
     Dosage: 10 MG, UNK
     Route: 048
     Dates: start: 20051214
  7. ACETYLSALICYLIC ACID SRT [Concomitant]
     Dosage: 81 MG, QD
     Route: 048
     Dates: start: 20060411
  8. LASIX [Concomitant]
     Dosage: 40 MG, UNK
     Route: 048
     Dates: start: 20060411
  9. VANCOMYCIN [Concomitant]
     Dosage: 1 G, Q12H
     Route: 042
     Dates: start: 20060411, end: 20060415
  10. GENTAMICIN [Concomitant]
     Dosage: UNK
     Route: 042
     Dates: start: 20060411, end: 20060415
  11. PROPOFOL [Concomitant]
     Dosage: 25
     Route: 042
  12. VECURONIUM BROMIDE [Concomitant]
     Dosage: 5
     Route: 042
  13. ISOPTIN [Concomitant]
     Dosage: UNK
     Route: 042
  14. LOPRESSOR [Concomitant]
     Dosage: 50 MG, Q6H
     Route: 048
     Dates: start: 20060413
  15. FENTANYL [Concomitant]
     Dosage: 15
     Route: 042
  16. COREG [Concomitant]
     Dosage: 12.5 MG, BID
     Route: 048
     Dates: start: 20060411
  17. ROCEPHIN [Concomitant]
     Dosage: 2 G, QD
     Route: 042
     Dates: start: 20060411
  18. TRASYLOL [Suspect]
     Indication: VENTRICULAR SEPTAL DEFECT REPAIR
  19. INSULIN, REGULAR [INSULIN] [Concomitant]
     Dosage: 10 U, UNK
     Route: 042

REACTIONS (11)
  - UNEVALUABLE EVENT [None]
  - CEREBROVASCULAR ACCIDENT [None]
  - RENAL INJURY [None]
  - MULTI-ORGAN FAILURE [None]
  - EMOTIONAL DISTRESS [None]
  - PAIN [None]
  - RENAL IMPAIRMENT [None]
  - RENAL FAILURE [None]
  - ANXIETY [None]
  - STRESS [None]
  - FEAR [None]
